FAERS Safety Report 8335770-3 (Version None)
Quarter: 2012Q2

REPORT INFORMATION
  Report Type: 
  Country: None (occurrence: None)
  Receive Date: 20120504
  Receipt Date: 20090922
  Transmission Date: 20120825
  Serious: No
  Sender: FDA-Public Use
  Company Number: 2009BI030479

PATIENT
  Age: 47 Year
  Sex: Female

DRUGS (2)
  1. TYSABRI [Suspect]
     Indication: MULTIPLE SCLEROSIS
     Route: 042
     Dates: start: 20080326, end: 20091125
  2. TYSABRI [Suspect]
     Route: 042
     Dates: start: 20100923

REACTIONS (1)
  - MULTIPLE SCLEROSIS RELAPSE [None]
